FAERS Safety Report 23199241 (Version 1)
Quarter: 2023Q4

REPORT INFORMATION
  Report Type: Spontaneous
  Country: US (occurrence: US)
  Receive Date: 20231117
  Receipt Date: 20231117
  Transmission Date: 20240110
  Serious: No
  Sender: FDA-Public Use
  Company Number: US-Stemline Therapeutics, Inc.-2023ST003963

PATIENT
  Age: 74 Year
  Sex: Female

DRUGS (2)
  1. ORSERDU [Suspect]
     Active Substance: ELACESTRANT
     Indication: Product used for unknown indication
     Dosage: 345 MG, ONCE A DAY
     Route: 048
     Dates: start: 20231003
  2. ONDANSETRON [Concomitant]
     Active Substance: ONDANSETRON
     Indication: Product used for unknown indication

REACTIONS (10)
  - Irritability [Unknown]
  - Adverse drug reaction [Unknown]
  - Feeding disorder [Unknown]
  - Malaise [Unknown]
  - Pain [Unknown]
  - Walking aid user [Unknown]
  - Dysstasia [Unknown]
  - Dysgeusia [Unknown]
  - Retching [Recovered/Resolved]
  - Headache [Unknown]

NARRATIVE: CASE EVENT DATE: 20231001
